FAERS Safety Report 25601540 (Version 1)
Quarter: 2025Q3

REPORT INFORMATION
  Report Type: Spontaneous
  Country: US (occurrence: None)
  Receive Date: 20250723
  Receipt Date: 20250723
  Transmission Date: 20251021
  Serious: Yes (Death)
  Sender: FDA-CTU
  Company Number: None

PATIENT
  Age: 73 Year
  Sex: Male
  Weight: 102.5 kg

DRUGS (18)
  1. RUGBY REGULAR STRENGTH ACETAMINOPHEN [Suspect]
     Active Substance: ACETAMINOPHEN
     Dosage: FREQUENCY : 3 TIMES A DAY;?
     Route: 048
  2. albuterol 0.083% nebulizer solution [Concomitant]
  3. aspirin 81mg chewable tablet [Concomitant]
  4. ATORVASTATIN CALCIUM [Concomitant]
     Active Substance: ATORVASTATIN CALCIUM
  5. cholecalciferol (Vitamin D3) 50,000 units capsule [Concomitant]
  6. divalproex 500mg DR tablet [Concomitant]
  7. duloxetine 20 mg DR capsule [Concomitant]
  8. econazole nitrate 1% cream [Concomitant]
  9. FUROSEMIDE [Concomitant]
     Active Substance: FUROSEMIDE
  10. gabapentin 800 mg tablet [Concomitant]
  11. hydralazine 25 mg tablet [Concomitant]
  12. levetiracetam 1000 mg tablet [Concomitant]
  13. levothyroxine 50 mcg tablet [Concomitant]
  14. melatonin 5 mg tablet [Concomitant]
  15. mirtazapine 30mg tablet [Concomitant]
  16. senna 8.6 mg tablet [Concomitant]
  17. sodium chloride 0.65% nasal spray [Concomitant]
  18. TRIAMCINOLONE ACETONIDE [Concomitant]
     Active Substance: TRIAMCINOLONE ACETONIDE

REACTIONS (1)
  - Death [None]
